FAERS Safety Report 11479026 (Version 3)
Quarter: 2018Q1

REPORT INFORMATION
  Report Type: Spontaneous
  Country: US (occurrence: US)
  Receive Date: 20150909
  Receipt Date: 20180330
  Transmission Date: 20180508
  Serious: No
  Sender: FDA-Public Use
  Company Number: US-JAZZ-2014-US-013039

PATIENT
  Sex: Female

DRUGS (3)
  1. XYREM [Suspect]
     Active Substance: SODIUM OXYBATE
     Indication: INSOMNIA
     Dosage: 2.25 G, BID
     Route: 048
     Dates: start: 201004, end: 2010
  2. XYREM [Suspect]
     Active Substance: SODIUM OXYBATE
     Dosage: DOSE ADJUSTMENT
     Route: 048
  3. XYREM [Suspect]
     Active Substance: SODIUM OXYBATE
     Dosage: 4.5 G, BID
     Route: 048
     Dates: start: 201005

REACTIONS (2)
  - Asthma [Recovering/Resolving]
  - Allergy to arthropod sting [Not Recovered/Not Resolved]

NARRATIVE: CASE EVENT DATE: 2014
